FAERS Safety Report 5115527-7 (Version None)
Quarter: 2006Q3

REPORT INFORMATION
  Report Type: 
  Country: None (occurrence: None)
  Receive Date: 20060927
  Receipt Date: 20060215
  Transmission Date: 20061208
  Serious: Yes (Death, Other)
  Sender: FDA-Public Use
  Company Number: PHFR2006GB00863

PATIENT
  Age: 8 Year
  Sex: Female
  Weight: 25 kg

DRUGS (1)
  1. TEGRETOL [Suspect]
     Indication: EPILEPSY
     Dosage: 7.5MG DAILY
     Route: 065

REACTIONS (23)
  - ALPHA HAEMOLYTIC STREPTOCOCCAL INFECTION [None]
  - BETA HAEMOLYTIC STREPTOCOCCAL INFECTION [None]
  - BIOPSY BRONCHUS ABNORMAL [None]
  - BIOPSY LARYNX ABNORMAL [None]
  - BIOPSY TRACHEA ABNORMAL [None]
  - BRAIN OEDEMA [None]
  - CARDIAC HYPERTROPHY [None]
  - CEREBRAL ISCHAEMIA [None]
  - CIRCULATORY COLLAPSE [None]
  - EPILEPSY [None]
  - HYPERTROPHIC CARDIOMYOPATHY [None]
  - INAPPROPRIATE SCHEDULE OF DRUG ADMINISTRATION [None]
  - INFLUENZA [None]
  - INFLUENZA SEROLOGY POSITIVE [None]
  - LUNG INFILTRATION [None]
  - MYOCARDIAL FIBROSIS [None]
  - MYOCARDIAL ISCHAEMIA [None]
  - PLEURAL HAEMORRHAGE [None]
  - PULMONARY CONGESTION [None]
  - PULMONARY OEDEMA [None]
  - RESPIRATORY ARREST [None]
  - TREMOR [None]
  - VENTRICULAR HYPERTROPHY [None]
